FAERS Safety Report 6324562-2 (Version None)
Quarter: 2009Q3

REPORT INFORMATION
  Report Type: 
  Country: None (occurrence: None)
  Receive Date: 20090824
  Receipt Date: 20090428
  Transmission Date: 20100115
  Serious: No
  Sender: FDA-Public Use
  Company Number: US-ABBOTT-09P-163-0570398-00

PATIENT
  Sex: Female
  Weight: 77.18 kg

DRUGS (4)
  1. NIASPAN [Suspect]
     Indication: BLOOD CHOLESTEROL INCREASED
     Dosage: AT BEDTIME
     Dates: start: 20090421
  2. NEXIUM [Concomitant]
     Indication: DRUG USE FOR UNKNOWN INDICATION
  3. HYZAAR [Concomitant]
     Indication: DRUG USE FOR UNKNOWN INDICATION
  4. ALEVE [Concomitant]
     Indication: DRUG USE FOR UNKNOWN INDICATION

REACTIONS (4)
  - ERYTHEMA [None]
  - FLUSHING [None]
  - INSOMNIA [None]
  - PRURITUS [None]
